FAERS Safety Report 4874820-3 (Version None)
Quarter: 2006Q1

REPORT INFORMATION
  Report Type: 
  Country: None (occurrence: None)
  Receive Date: 20060104
  Receipt Date: 20051219
  Transmission Date: 20060701
  Serious: Yes (Hospitalization)
  Sender: FDA-Public Use
  Company Number: 2005170302

PATIENT
  Age: 70 Year
  Sex: Male
  Weight: 75 kg

DRUGS (7)
  1. TAHOR (ATORVASTATIN) [Suspect]
     Indication: MIXED HYPERLIPIDAEMIA
     Dosage: 1 IN 1 D ORAL
     Route: 048
     Dates: start: 20050301
  2. LERCANIDIPINE [Suspect]
     Indication: ESSENTIAL HYPERTENSION
     Dosage: 1 IN 1 D ORAL
     Route: 048
     Dates: start: 20050501, end: 20051115
  3. CLOMIPRAMINE HCL [Suspect]
     Indication: DYSTHYMIC DISORDER
     Dosage: 25 MG, 1 IN 1 D, ORAL
     Route: 048
  4. VICTAN (ETHYL LOFLAZEPATE) [Suspect]
     Indication: DYSTHYMIC DISORDER
     Dosage: 2 MG, 1 IN 1 D, ORAL
     Route: 048
  5. ALLOPURINOL [Suspect]
     Indication: GOUT
     Dosage: 200 MG, 1 IN 1 D, ORAL
     Route: 048
  6. FINASTERIDE [Suspect]
     Indication: PROSTATE CANCER
     Dosage: 5 MG, 1 IN 1 D, ORAL
     Route: 048
  7. PANTOPRAZOLE [Concomitant]

REACTIONS (5)
  - CHEST PAIN [None]
  - COOMBS NEGATIVE HAEMOLYTIC ANAEMIA [None]
  - DYSPNOEA EXERTIONAL [None]
  - JAUNDICE [None]
  - SPLENOMEGALY [None]
